FAERS Safety Report 5300201-4 (Version None)
Quarter: 2007Q2

REPORT INFORMATION
  Report Type: 
  Country: None (occurrence: None)
  Receive Date: 20070411
  Receipt Date: 20070327
  Transmission Date: 20071010
  Serious: Yes (Death)
  Sender: FDA-Public Use
  Company Number: 112

PATIENT
  Sex: Male

DRUGS (1)
  1. FAZACLO ODT [Suspect]
     Dosage: 150 MG PO DAILY
     Dates: start: 20070309, end: 20070323

REACTIONS (1)
  - DEATH [None]
